FAERS Safety Report 16687845 (Version 1)
Quarter: 2019Q4

REPORT INFORMATION
  Report Type: Spontaneous
  Country: US (occurrence: US)
  Receive Date: 20190808
  Receipt Date: 20190808
  Transmission Date: 20200122
  Serious: No
  Sender: FDA-Public Use
  Company Number: None

PATIENT
  Age: 64 Year
  Sex: Female
  Weight: 54 kg

DRUGS (5)
  1. TUMS [Concomitant]
     Active Substance: CALCIUM CARBONATE
  2. ALENDRONATE SODIUM 70MG [Suspect]
     Active Substance: ALENDRONATE SODIUM
     Indication: OSTEOPOROSIS
     Dosage: ?          QUANTITY:1 TABLET(S);OTHER FREQUENCY:WEEKLY;?
     Route: 048
     Dates: start: 20190722, end: 20190723
  3. ASA [Concomitant]
     Active Substance: ASPIRIN
  4. FISH OIL [Concomitant]
     Active Substance: FISH OIL
  5. VIT D [Concomitant]
     Active Substance: VITAMIN D NOS

REACTIONS (9)
  - Muscle spasms [None]
  - Peripheral swelling [None]
  - Arthralgia [None]
  - Musculoskeletal pain [None]
  - Erythema [None]
  - Neck pain [None]
  - Back pain [None]
  - Tenderness [None]
  - Myalgia [None]

NARRATIVE: CASE EVENT DATE: 20190723
